FAERS Safety Report 9424074 (Version 2)
Quarter: 2016Q1

REPORT INFORMATION
  Report Type: Report from Study
  Country: US (occurrence: US)
  Receive Date: 20130729
  Receipt Date: 20160302
  Transmission Date: 20160526
  Serious: Yes (Hospitalization)
  Sender: FDA-Public Use
  Company Number: US-ROCHE-1252822

PATIENT
  Age: 50 Year
  Sex: Male

DRUGS (5)
  1. COPEGUS [Suspect]
     Active Substance: RIBAVIRIN
     Indication: CHRONIC HEPATITIS C
     Dosage: 3 TABLETS IN THE AM AND 3 TABLETS IN THE PM
     Route: 048
     Dates: start: 20130712
  2. PEGASYS [Suspect]
     Active Substance: PEGINTERFERON ALFA-2A
     Indication: CHRONIC HEPATITIS C
     Dosage: EVERY FRIDAY
     Route: 058
     Dates: start: 20130712
  3. INCIVEK [Suspect]
     Active Substance: TELAPREVIR
     Indication: CHRONIC HEPATITIS C
     Route: 048
     Dates: start: 20130712
  4. METOPROLOL. [Concomitant]
     Active Substance: METOPROLOL
     Indication: BLOOD PRESSURE MEASUREMENT
     Route: 048
  5. HYDROCHLOROTHIAZIDE. [Concomitant]
     Active Substance: HYDROCHLOROTHIAZIDE
     Route: 048

REACTIONS (9)
  - Pain in extremity [Recovering/Resolving]
  - Rash [Not Recovered/Not Resolved]
  - Paraesthesia [Recovering/Resolving]
  - Irritability [Recovering/Resolving]
  - Pruritus [Recovering/Resolving]
  - Muscle spasms [Recovering/Resolving]
  - Blister [Recovered/Resolved]
  - Arthralgia [Recovering/Resolving]
  - Peripheral swelling [Recovered/Resolved]

NARRATIVE: CASE EVENT DATE: 20130712
